FAERS Safety Report 6418230-6 (Version None)
Quarter: 2009Q4

REPORT INFORMATION
  Report Type: 
  Country: None (occurrence: None)
  Receive Date: 20091028
  Receipt Date: 20091023
  Transmission Date: 20100525
  Serious: Yes (Hospitalization, Other)
  Sender: FDA-Public Use
  Company Number: US-GILEAD-2008-0016466

PATIENT
  Sex: Female

DRUGS (11)
  1. LETAIRIS [Suspect]
     Dates: start: 20070914, end: 20080519
  2. TYLENOL [Suspect]
  3. ALTACE [Concomitant]
  4. LASIX [Concomitant]
  5. VYTORIN [Concomitant]
  6. METOPROLOL [Concomitant]
  7. BENICAR [Concomitant]
  8. POTASSIUM CHLORIDE [Concomitant]
  9. LANTUS [Concomitant]
  10. COUMADIN [Concomitant]
  11. REMODULIN [Concomitant]

REACTIONS (4)
  - ABDOMINAL PAIN [None]
  - LIVER FUNCTION TEST ABNORMAL [None]
  - SWELLING [None]
  - VOMITING [None]
